FAERS Safety Report 20914761 (Version 2)
Quarter: 2022Q3

REPORT INFORMATION
  Report Type: Spontaneous
  Country: US (occurrence: US)
  Receive Date: 20220604
  Receipt Date: 20220911
  Transmission Date: 20221027
  Serious: No
  Sender: FDA-Public Use
  Company Number: US-SA-SAC20220524000418

PATIENT
  Age: 28 Year
  Sex: Female

DRUGS (1)
  1. DUPIXENT [Suspect]
     Active Substance: DUPILUMAB
     Dosage: 300 MG, OTHER
     Route: 058

REACTIONS (9)
  - Oropharyngeal pain [Unknown]
  - Weight increased [Unknown]
  - Visual impairment [Unknown]
  - Rash pruritic [Unknown]
  - Ear infection [Unknown]
  - Fear of injection [Unknown]
  - Product dose omission issue [Unknown]
  - Ear discomfort [Unknown]
  - Dry skin [Unknown]

NARRATIVE: CASE EVENT DATE: 20220406
